FAERS Safety Report 6303136-3 (Version None)
Quarter: 2009Q3

REPORT INFORMATION
  Report Type: 
  Country: None (occurrence: None)
  Receive Date: 20090810
  Receipt Date: 20090803
  Transmission Date: 20100115
  Serious: No
  Sender: FDA-Public Use
  Company Number: US-B.I. PHARMACEUTICALS,INC./RIDGEFIELD-2009-BP-09172BP

PATIENT
  Sex: Female

DRUGS (8)
  1. ZANTAC 75 [Suspect]
     Indication: GASTROOESOPHAGEAL REFLUX DISEASE
     Dosage: 150 MG
     Route: 048
     Dates: start: 20090725, end: 20090729
  2. DULCOLAX [Concomitant]
     Indication: DIVERTICULITIS
     Dates: start: 20090701
  3. NITROGLYCERIN [Concomitant]
     Indication: ANGINA PECTORIS
  4. ATENOLOL [Concomitant]
     Indication: HYPERTENSION
     Dates: start: 20030101
  5. ATENOLOL [Concomitant]
     Indication: ARRHYTHMIA
  6. VYTORIN [Concomitant]
     Indication: BLOOD CHOLESTEROL INCREASED
     Route: 048
  7. EXFORGE [Concomitant]
     Indication: HYPERTENSION
     Route: 048
  8. GLUCOPHAGE [Concomitant]
     Indication: DIABETES MELLITUS
     Dosage: 500 MG
     Route: 048
     Dates: start: 20000101

REACTIONS (1)
  - RASH PRURITIC [None]
